FAERS Safety Report 9969406 (Version 1)
Quarter: 2014Q1

REPORT INFORMATION
  Report Type: Report from Study
  Country: FR (occurrence: FR)
  Receive Date: 20140306
  Receipt Date: 20140306
  Transmission Date: 20141002
  Serious: Yes (Hospitalization)
  Sender: FDA-Public Use
  Company Number: FR-BRISTOL-MYERS SQUIBB COMPANY-20297735

PATIENT
  Age: 57 Year
  Sex: Male

DRUGS (5)
  1. BLINDED: IPILIMUMAB [Suspect]
     Indication: NON-SMALL CELL LUNG CANCER
     Dosage: 1DF=810-UNITS NOS?LAST DOSE: 07-FEB-2014
     Route: 042
     Dates: start: 20131205
  2. CARBOPLATIN [Suspect]
     Indication: NON-SMALL CELL LUNG CANCER
     Dosage: 1DF=540-UNITS NOS?LAST DOSE: 07-FEB-2014
     Route: 042
     Dates: start: 20131205
  3. PACLITAXEL [Suspect]
     Indication: NON-SMALL CELL LUNG CANCER
     Dosage: 1DF=336-UNITS NOS?LAST DOSE: 07-FEB-2014
     Route: 042
     Dates: start: 20131205
  4. BLINDED: PLACEBO [Suspect]
     Indication: NON-SMALL CELL LUNG CANCER
     Route: 042
     Dates: start: 20140207
  5. IMODIUM [Concomitant]
     Dates: start: 20140207

REACTIONS (1)
  - Diarrhoea [Not Recovered/Not Resolved]
